FAERS Safety Report 9742617 (Version 1)
Quarter: 2013Q4

REPORT INFORMATION
  Report Type: Spontaneous
  Country: US (occurrence: US)
  Receive Date: 20131210
  Receipt Date: 20131210
  Transmission Date: 20140711
  Serious: No
  Sender: FDA-Public Use
  Company Number: US-GILEAD-2009-0024731

PATIENT
  Sex: Male
  Weight: 92.99 kg

DRUGS (19)
  1. LETAIRIS [Suspect]
     Indication: PULMONARY ARTERIAL HYPERTENSION
     Route: 048
     Dates: start: 20090923
  2. LASIX [Concomitant]
  3. ALPRAZOLAM [Concomitant]
  4. COREG [Concomitant]
  5. LIPITOR [Concomitant]
  6. VICODIN [Concomitant]
  7. PROVENTIL [Concomitant]
  8. IMDUR [Concomitant]
  9. SINGULAIR [Concomitant]
  10. VERELAN [Concomitant]
  11. ADVAIR [Concomitant]
  12. NEXIUM [Concomitant]
  13. FLOMAX [Concomitant]
  14. SPIRIVA [Concomitant]
  15. PLAVIX [Concomitant]
  16. ASPIRIN [Concomitant]
  17. SMG/TMPDS 800/160 [Concomitant]
  18. POTASSIUM CHLORIDE [Concomitant]
  19. FLOMAX [Concomitant]

REACTIONS (2)
  - Unevaluable event [Unknown]
  - Oedema peripheral [Unknown]
